FAERS Safety Report 6181852-4 (Version None)
Quarter: 2009Q2

REPORT INFORMATION
  Report Type: 
  Country: None (occurrence: None)
  Receive Date: 20090506
  Receipt Date: 20090429
  Transmission Date: 20091009
  Serious: Yes (Other)
  Sender: FDA-Public Use
  Company Number: GB-BAXTER-2009BH007624

PATIENT
  Age: 25 Year
  Sex: Female

DRUGS (4)
  1. HEPARIN [Suspect]
     Indication: THROMBOSIS PROPHYLAXIS
     Route: 010
  2. BENZATHINE PENICILLIN G [Concomitant]
     Indication: STREPTOCOCCAL INFECTION
     Route: 065
  3. CLINDAMYCIN HCL [Concomitant]
     Indication: STREPTOCOCCAL INFECTION
     Route: 065
  4. METRONIDAZOLE [Concomitant]
     Indication: STREPTOCOCCAL INFECTION
     Route: 065

REACTIONS (1)
  - HEPARIN-INDUCED THROMBOCYTOPENIA [None]
